FAERS Safety Report 4466389-2 (Version None)
Quarter: 2004Q3

REPORT INFORMATION
  Report Type: 
  Country: None (occurrence: None)
  Receive Date: 20040930
  Receipt Date: 20040921
  Transmission Date: 20050211
  Serious: Yes (Hospitalization)
  Sender: FDA-Public Use
  Company Number: A03200403227

PATIENT
  Age: 69 Year
  Sex: Male
  Weight: 92.5338 kg

DRUGS (4)
  1. PLAVIX [Suspect]
     Indication: TRANSIENT ISCHAEMIC ATTACK
     Dosage: 75 MG QD - ORAL
     Route: 048
     Dates: end: 20040602
  2. ACETYLSALICYLIC ACID [Concomitant]
  3. METOPROLOL SUCCINATE [Concomitant]
  4. LOSARTAN POTASSIUM [Concomitant]

REACTIONS (1)
  - ACUTE MYELOID LEUKAEMIA [None]
